FAERS Safety Report 6517989-7 (Version None)
Quarter: 2009Q4

REPORT INFORMATION
  Report Type: 
  Country: None (occurrence: None)
  Receive Date: 20091223
  Receipt Date: 20091223
  Transmission Date: 20100525
  Serious: No
  Sender: FDA-Public Use
  Company Number: None

PATIENT
  Sex: Male

DRUGS (2)
  1. FER-IN-SOL DROPS 15MG/1 ML MEAD JOHNSON [Suspect]
     Indication: ANAEMIA
     Dosage: 0.67 ML ONCE A DAY ORAL
     Route: 048
     Dates: start: 20090708, end: 20090820
  2. FERROUS SULFATE DROPS 15MG/0.6 ML MAJOR [Suspect]
     Indication: ANAEMIA
     Dosage: 0.67 ML ONCE A DAY ORAL
     Route: 048
     Dates: start: 20090821, end: 20091221

REACTIONS (4)
  - ANAEMIA [None]
  - INCORRECT DOSE ADMINISTERED [None]
  - MEDICATION ERROR [None]
  - PRODUCT LABEL ISSUE [None]
